FAERS Safety Report 7977185-3 (Version None)
Quarter: 2011Q4

REPORT INFORMATION
  Report Type: 
  Country: None (occurrence: None)
  Receive Date: 20111213
  Receipt Date: 20111108
  Transmission Date: 20120403
  Serious: No
  Sender: FDA-Public Use
  Company Number: US-AMGEN-USASP2011058675

PATIENT
  Age: 62 Year
  Sex: Female
  Weight: 91.61 kg

DRUGS (1)
  1. ENBREL [Suspect]
     Indication: RHEUMATOID ARTHRITIS
     Dosage: 50 MG, QWK
     Route: 058
     Dates: start: 20110316

REACTIONS (6)
  - FATIGUE [None]
  - DYSPHAGIA [None]
  - NASAL CONGESTION [None]
  - JOINT DESTRUCTION [None]
  - SLEEP APNOEA SYNDROME [None]
  - OROPHARYNGEAL PAIN [None]
